FAERS Safety Report 23032403 (Version 6)
Quarter: 2023Q4

REPORT INFORMATION
  Report Type: Spontaneous
  Country: US (occurrence: US)
  Receive Date: 20231005
  Receipt Date: 20231116
  Transmission Date: 20240110
  Serious: No
  Sender: FDA-Public Use
  Company Number: US-PFIZER INC-202300299793

PATIENT
  Age: 13 Year
  Sex: Male
  Weight: 51.247 kg

DRUGS (2)
  1. SOMATROPIN [Suspect]
     Active Substance: SOMATROPIN
     Indication: Growth hormone deficiency
     Dosage: 2.0 MG, 1X/DAY [ONCE A DAY AT NIGHT]
     Route: 058
     Dates: start: 202303
  2. SOMATROPIN [Suspect]
     Active Substance: SOMATROPIN
     Indication: Ectopic posterior pituitary gland
     Dosage: 1.8 MG
     Dates: start: 202303

REACTIONS (1)
  - Device leakage [Unknown]
